FAERS Safety Report 4365154-4 (Version None)
Quarter: 2004Q2

REPORT INFORMATION
  Report Type: 
  Country: None (occurrence: None)
  Receive Date: 20040525
  Receipt Date: 20040309
  Transmission Date: 20050107
  Serious: No
  Sender: FDA-Public Use
  Company Number: PHEH2004US01516

PATIENT
  Age: 71 Year
  Sex: Female
  Weight: 49.9 kg

DRUGS (3)
  1. ZELNORM [Suspect]
     Indication: IRRITABLE BOWEL SYNDROME
     Dosage: 6 MG BID ORAL
     Route: 048
     Dates: start: 20040101, end: 20040101
  2. LESCOL (FLUVASTATINN SODIUM) [Concomitant]
  3. CALCIUM [Concomitant]

REACTIONS (4)
  - BURNING SENSATION [None]
  - HEAT RASH [None]
  - OEDEMA PERIPHERAL [None]
  - PRURITUS [None]
